FAERS Safety Report 7780188-5 (Version None)
Quarter: 2011Q3

REPORT INFORMATION
  Report Type: 
  Country: None (occurrence: None)
  Receive Date: 20110927
  Receipt Date: 20110927
  Transmission Date: 20111222
  Serious: Yes (Life-Threatening)
  Sender: FDA-Public Use
  Company Number: None

PATIENT
  Age: 53 Year
  Sex: Male
  Weight: 79.378 kg

DRUGS (2)
  1. CIPROFLOXACIN [Concomitant]
     Indication: PROSTATE INFECTION
     Dosage: 1 PILL
     Route: 048
  2. GEODON [Suspect]
     Indication: BIPOLAR DISORDER
     Dosage: 1 PILL
     Route: 048

REACTIONS (2)
  - ATRIAL FIBRILLATION [None]
  - ARRHYTHMIA [None]
